FAERS Safety Report 4310980-0 (Version None)
Quarter: 2004Q1

REPORT INFORMATION
  Report Type: 
  Country: None (occurrence: None)
  Receive Date: 20040302
  Receipt Date: 20040217
  Transmission Date: 20041129
  Serious: Yes (Death)
  Sender: FDA-Public Use
  Company Number: 200301950

PATIENT
  Age: 36 Year
  Sex: Male

DRUGS (2)
  1. IMODIUM [Suspect]
     Indication: DIARRHOEA
     Dosage: 6 MG PO
     Route: 048
     Dates: start: 19970215, end: 19970215
  2. CLOZAPINE [Suspect]
     Indication: SCHIZOPHRENIA
     Dosage: 500 MG DAILY PO
     Route: 048
     Dates: start: 19960704

REACTIONS (10)
  - DRUG INTERACTION [None]
  - DRUG LEVEL ABOVE THERAPEUTIC [None]
  - GASTROENTERITIS [None]
  - HAEMATEMESIS [None]
  - INTRA-ABDOMINAL HAEMORRHAGE [None]
  - LOSS OF CONSCIOUSNESS [None]
  - NECROTISING COLITIS [None]
  - PROCEDURAL COMPLICATION [None]
  - SHOCK [None]
  - TOXIC DILATATION OF COLON [None]
